FAERS Safety Report 8559960-X (Version None)
Quarter: 2012Q3

REPORT INFORMATION
  Report Type: 
  Country: None (occurrence: None)
  Receive Date: 20120802
  Receipt Date: 20120725
  Transmission Date: 20120928
  Serious: Yes (Other)
  Sender: FDA-Public Use
  Company Number: CA-JNJFOC-20120800041

PATIENT
  Age: 19 Year
  Sex: Female

DRUGS (2)
  1. CETIRIZINE HCL [Suspect]
     Indication: MULTIPLE ALLERGIES
     Route: 048
  2. CETIRIZINE HCL [Suspect]
     Indication: ASTHMA
     Route: 048

REACTIONS (2)
  - COELIAC DISEASE [None]
  - OFF LABEL USE [None]
